FAERS Safety Report 13129883 (Version 1)
Quarter: 2017Q1

REPORT INFORMATION
  Report Type: Spontaneous
  Country: US (occurrence: US)
  Receive Date: 20170118
  Receipt Date: 20170118
  Transmission Date: 20170428
  Serious: Yes (Other)
  Sender: FDA-Public Use
  Company Number: None

PATIENT
  Age: 55 Day
  Sex: Female
  Weight: 81 kg

DRUGS (15)
  1. ADDERALL [Concomitant]
     Active Substance: AMPHETAMINE ASPARTATE\AMPHETAMINE SULFATE\DEXTROAMPHETAMINE SACCHARATE\DEXTROAMPHETAMINE SULFATE
  2. SANCUSO [Concomitant]
     Active Substance: GRANISETRON
  3. SEROQUEL [Concomitant]
     Active Substance: QUETIAPINE FUMARATE
  4. DIFLUCAN [Concomitant]
     Active Substance: FLUCONAZOLE
  5. CYMBALTA [Concomitant]
     Active Substance: DULOXETINE HYDROCHLORIDE
  6. LEVOTHYROXINE. [Concomitant]
     Active Substance: LEVOTHYROXINE
  7. DILAUDID [Concomitant]
     Active Substance: HYDROMORPHONE HYDROCHLORIDE
  8. MESTINON [Concomitant]
     Active Substance: PYRIDOSTIGMINE BROMIDE
  9. OM- PREZOLE [Concomitant]
  10. VICODIN [Concomitant]
     Active Substance: ACETAMINOPHEN\HYDROCODONE BITARTRATE
  11. RITUXAN [Concomitant]
     Active Substance: RITUXIMAB
  12. RITUXAN [Suspect]
     Active Substance: RITUXIMAB
     Indication: MYASTHENIA GRAVIS
     Dosage: ?          OTHER FREQUENCY:Q 8 WEEKS;?
     Route: 042
     Dates: start: 20140126, end: 20170118
  13. LOSARTAN. [Concomitant]
     Active Substance: LOSARTAN
  14. IBUPROPHEN [Concomitant]
     Active Substance: IBUPROFEN
  15. VALIUM [Concomitant]
     Active Substance: DIAZEPAM

REACTIONS (2)
  - Meningitis aseptic [None]
  - Pain [None]

NARRATIVE: CASE EVENT DATE: 20160618
